FAERS Safety Report 10892430 (Version 1)
Quarter: 2015Q1

REPORT INFORMATION
  Report Type: Spontaneous
  Country: AU (occurrence: AU)
  Receive Date: 20150306
  Receipt Date: 20150306
  Transmission Date: 20150721
  Serious: Yes (Other)
  Sender: FDA-Public Use
  Company Number: AU-PFIZER INC-2015043635

PATIENT
  Age: 44 Year
  Sex: Male
  Weight: 90 kg

DRUGS (10)
  1. GENTAMICIN SULFATE. [Concomitant]
     Active Substance: GENTAMICIN SULFATE
  2. VECURONIUM BROMIDE. [Suspect]
     Active Substance: VECURONIUM BROMIDE
     Indication: SENSORY DISTURBANCE
     Dosage: 7 MG, ONE TIME
  3. MORPHINE HCL [Suspect]
     Active Substance: MORPHINE HYDROCHLORIDE
     Indication: SENSORY DISTURBANCE
     Dosage: 1 DF, ONE TIME
  4. MAXOLON [Suspect]
     Active Substance: METOCLOPRAMIDE HYDROCHLORIDE
     Indication: PREMEDICATION
     Dosage: 10 MG, ONE TIME
  5. FENTANYL CITRATE. [Suspect]
     Active Substance: FENTANYL CITRATE
     Indication: SENSORY DISTURBANCE
     Dosage: 200 ?G, ONE TIME
  6. THIOPENTAL SODIUM. [Suspect]
     Active Substance: THIOPENTAL SODIUM
     Indication: SENSORY DISTURBANCE
     Dosage: 500 MG, ONE TIME
  7. TEMAZEPAM. [Suspect]
     Active Substance: TEMAZEPAM
     Indication: PREMEDICATION
     Dosage: 10 MG, ONE TIME
  8. METRONIDAZOLE. [Suspect]
     Active Substance: METRONIDAZOLE
     Dosage: 500 MG, ONE TIME
     Route: 042
  9. ISOFLURANE. [Suspect]
     Active Substance: ISOFLURANE
  10. CEFAZOLIN SODIUM. [Suspect]
     Active Substance: CEFAZOLIN SODIUM
     Dosage: 1 G, ONE TIME

REACTIONS (5)
  - Hyperthermia malignant [Not Recovered/Not Resolved]
  - Tachycardia [Not Recovered/Not Resolved]
  - Blood creatine phosphokinase increased [Not Recovered/Not Resolved]
  - Chills [Not Recovered/Not Resolved]
  - Hypertension [Not Recovered/Not Resolved]

NARRATIVE: CASE EVENT DATE: 19950622
